FAERS Safety Report 14854156 (Version 3)
Quarter: 2018Q2

REPORT INFORMATION
  Report Type: Report from Study
  Country: US (occurrence: US)
  Receive Date: 20180507
  Receipt Date: 20180521
  Transmission Date: 20180711
  Serious: Yes (Hospitalization)
  Sender: FDA-Public Use
  Company Number: US-TAKEDA-2018MPI004542

PATIENT
  Age: 62 Year
  Sex: Male
  Weight: 143 kg

DRUGS (3)
  1. IXAZOMIB [Suspect]
     Active Substance: IXAZOMIB
     Indication: PLASMA CELL MYELOMA
     Dosage: 4 MG, UNK
     Route: 048
     Dates: start: 20180129, end: 20180327
  2. DEXAMETHASONE. [Suspect]
     Active Substance: DEXAMETHASONE
     Indication: PLASMA CELL MYELOMA
     Dosage: 4 MG, UNK
     Route: 048
     Dates: start: 20180129, end: 20180327
  3. REVLIMID [Suspect]
     Active Substance: LENALIDOMIDE
     Indication: PLASMA CELL MYELOMA
     Dosage: 5 MG, UNK
     Route: 048
     Dates: start: 20180129, end: 20180327

REACTIONS (4)
  - Pyrexia [Recovered/Resolved]
  - Osteomyelitis [Recovering/Resolving]
  - Urinary tract infection [Recovered/Resolved]
  - Toe amputation [Recovering/Resolving]

NARRATIVE: CASE EVENT DATE: 20180401
